FAERS Safety Report 7953487-1 (Version None)
Quarter: 2011Q4

REPORT INFORMATION
  Report Type: 
  Country: None (occurrence: None)
  Receive Date: 20111202
  Receipt Date: 20111130
  Transmission Date: 20120403
  Serious: Yes (Hospitalization)
  Sender: FDA-Public Use
  Company Number: JP-TEVA-301883USA

PATIENT
  Age: 35 Year
  Sex: Male

DRUGS (6)
  1. ZINC ACETATE [Suspect]
     Indication: HEPATO-LENTICULAR DEGENERATION
     Dosage: 75MG (25MG 3X/DAY)
     Route: 048
     Dates: start: 20080624, end: 20080721
  2. PHYTONADIONE [Concomitant]
     Dosage: 5 MILLIGRAM;
     Route: 048
     Dates: start: 20101006, end: 20110514
  3. ZINC ACETATE [Suspect]
     Dosage: 150MG (50MG 3X/DAY)-14-MAY2011 DOSE UNCLEAR
     Route: 048
     Dates: start: 20091025, end: 20110531
  4. QP KOWA GOLD [Concomitant]
     Indication: METABOLIC DISORDER
     Route: 048
     Dates: start: 20110514
  5. TIZANIDINE HYDROCHLORIDE [Concomitant]
     Dosage: 3 MILLIGRAM;
     Route: 048
     Dates: start: 20101006, end: 20110514
  6. PYRIDOXAL PHOSPHATE [Concomitant]
     Dosage: 20 MILLIGRAM;
     Route: 048
     Dates: start: 20101006, end: 20110514

REACTIONS (3)
  - ASPARTATE AMINOTRANSFERASE INCREASED [None]
  - BLOOD CREATINE PHOSPHOKINASE INCREASED [None]
  - INTENTIONAL OVERDOSE [None]
